FAERS Safety Report 6802470-8 (Version None)
Quarter: 2010Q2

REPORT INFORMATION
  Report Type: 
  Country: None (occurrence: None)
  Receive Date: 20100628
  Receipt Date: 20100617
  Transmission Date: 20101027
  Serious: No
  Sender: FDA-Public Use
  Company Number: 2009BI030083

PATIENT
  Sex: Female

DRUGS (1)
  1. TYSABRI [Suspect]
     Indication: MULTIPLE SCLEROSIS
     Route: 042
     Dates: start: 20080313

REACTIONS (10)
  - ATROPHIC VULVOVAGINITIS [None]
  - BLADDER DISORDER [None]
  - CONSTIPATION [None]
  - CYSTITIS [None]
  - FATIGUE [None]
  - HYPOAESTHESIA [None]
  - POOR VENOUS ACCESS [None]
  - VAGINAL INFECTION [None]
  - VASOCONSTRICTION [None]
  - WEIGHT INCREASED [None]
